FAERS Safety Report 8737952 (Version 4)
Quarter: 2014Q1

REPORT INFORMATION
  Report Type: Spontaneous
  Country: US (occurrence: US)
  Receive Date: 20120823
  Receipt Date: 20140212
  Transmission Date: 20141002
  Serious: Yes (Disabling, Other)
  Sender: FDA-Public Use
  Company Number: US-009507513-1208USA004439

PATIENT
  Sex: Female

DRUGS (2)
  1. FOSAMAX [Suspect]
     Indication: OSTEOPOROSIS
     Dosage: 70 MG, QW
     Route: 048
     Dates: start: 1995
  2. ALENDRONATE SODIUM [Suspect]
     Dosage: 70 MG, UNK
     Route: 048

REACTIONS (26)
  - Femur fracture [Unknown]
  - Intramedullary rod insertion [Unknown]
  - Bone disorder [Unknown]
  - Low turnover osteopathy [Unknown]
  - Pulmonary embolism [Unknown]
  - Cerebrovascular accident [Unknown]
  - Cholecystectomy [Unknown]
  - Renal failure [Unknown]
  - Bone infarction [Unknown]
  - Fracture displacement [Unknown]
  - Impaired healing [Unknown]
  - Hypertension [Unknown]
  - Type 2 diabetes mellitus [Unknown]
  - Hyperlipidaemia [Unknown]
  - Varicose vein [Unknown]
  - Fluid retention [Unknown]
  - Extrasystoles [Unknown]
  - Hysterectomy [Unknown]
  - Appendicectomy [Unknown]
  - Faecal incontinence [Not Recovered/Not Resolved]
  - Urinary incontinence [Not Recovered/Not Resolved]
  - Cardiac murmur [Unknown]
  - Device failure [Unknown]
  - Balance disorder [Unknown]
  - Sinus tachycardia [Unknown]
  - Gastrooesophageal reflux disease [Unknown]
